FAERS Safety Report 14706402 (Version 3)
Quarter: 2018Q3

REPORT INFORMATION
  Report Type: Report from Study
  Country: FR (occurrence: FR)
  Receive Date: 20180402
  Receipt Date: 20180724
  Transmission Date: 20181010
  Serious: Yes (Death, Hospitalization, Other)
  Sender: FDA-Public Use
  Company Number: FR-SA-2015SA172370

PATIENT
  Age: 58 Year
  Sex: Male
  Weight: 80 kg

DRUGS (12)
  1. FLUOROURACIL. [Suspect]
     Active Substance: FLUOROURACIL
     Dosage: 4000 MG,QCY
     Route: 041
     Dates: start: 20150428, end: 20150428
  2. DIOSMECTITE [Concomitant]
     Active Substance: MONTMORILLONITE
     Dosage: UNK UNK,UNK
     Route: 065
     Dates: start: 20150602
  3. BUDESONIDE. [Concomitant]
     Active Substance: BUDESONIDE
     Dosage: UNK UNK,UNK
     Route: 065
     Dates: start: 20150804
  4. IRINOTECAN [Suspect]
     Active Substance: IRINOTECAN
     Dosage: 180 MG,QCY
     Route: 041
     Dates: start: 20150825, end: 20150825
  5. FOLINIC ACID [Suspect]
     Active Substance: LEUCOVORIN
     Dosage: 400 MG,QCY
     Route: 041
     Dates: start: 20150825, end: 20150825
  6. FLUOROURACIL. [Suspect]
     Active Substance: FLUOROURACIL
     Indication: COLORECTAL CANCER METASTATIC
     Dosage: 1200 MG,QCY
     Route: 040
     Dates: start: 20150429, end: 20150429
  7. AFLIBERCEPT [Suspect]
     Active Substance: AFLIBERCEPT
     Dosage: 330 MG,QCY
     Route: 041
     Dates: start: 20150825, end: 20150825
  8. FLUOROURACIL. [Suspect]
     Active Substance: FLUOROURACIL
     Dosage: 1200 MG,QCY
     Route: 040
     Dates: start: 20150825, end: 20150825
  9. AFLIBERCEPT [Suspect]
     Active Substance: AFLIBERCEPT
     Indication: COLORECTAL CANCER METASTATIC
     Dosage: 330 MG,QCY
     Route: 041
     Dates: start: 20150428, end: 20150428
  10. IRINOTECAN [Suspect]
     Active Substance: IRINOTECAN
     Indication: COLORECTAL CANCER METASTATIC
     Dosage: 300 MG,QCY
     Route: 041
     Dates: start: 20150428, end: 20150428
  11. FLUOROURACIL. [Suspect]
     Active Substance: FLUOROURACIL
     Dosage: 4400 MG,QCY
     Route: 041
     Dates: start: 20150825, end: 20150825
  12. FOLINIC ACID [Suspect]
     Active Substance: LEUCOVORIN
     Indication: COLORECTAL CANCER METASTATIC
     Dosage: 400 MG,QCY
     Route: 041
     Dates: start: 20150429, end: 20150429

REACTIONS (3)
  - Hepatic failure [Fatal]
  - Disease progression [Fatal]
  - Weight decreased [Recovered/Resolved]

NARRATIVE: CASE EVENT DATE: 20150909
